FAERS Safety Report 4877524-6 (Version None)
Quarter: 2006Q1

REPORT INFORMATION
  Report Type: 
  Country: None (occurrence: None)
  Receive Date: 20060111
  Receipt Date: 20060102
  Transmission Date: 20060701
  Serious: Yes (Other)
  Sender: FDA-Public Use
  Company Number: PHBS2006US00475

PATIENT
  Age: 58 Year
  Sex: Male

DRUGS (2)
  1. BENAZEPRIL + AMLODIPINE [Suspect]
  2. RT-PA [Suspect]
     Indication: CEREBRAL INFARCTION

REACTIONS (2)
  - ANGIONEUROTIC OEDEMA [None]
  - CEREBRAL INFARCTION [None]
